APPROVED DRUG PRODUCT: DIFLUNISAL
Active Ingredient: DIFLUNISAL
Strength: 250MG
Dosage Form/Route: TABLET;ORAL
Application: A202845 | Product #002
Applicant: HERITAGE PHARMA LABS INC
Approved: Aug 16, 2024 | RLD: No | RS: No | Type: RX